FAERS Safety Report 9184388 (Version 1)
Quarter: 2013Q1

REPORT INFORMATION
  Report Type: Spontaneous
  Country: US (occurrence: US)
  Receive Date: 20130322
  Receipt Date: 20130322
  Transmission Date: 20140127
  Serious: Yes (Other)
  Sender: FDA-Public Use
  Company Number: US-JNJFOC-20130314010

PATIENT
  Sex: 0

DRUGS (7)
  1. DOXORUBICIN [Suspect]
     Indication: BONE SARCOMA
     Route: 042
  2. METHOTREXATE [Suspect]
     Indication: BONE SARCOMA
     Route: 065
  3. CISPLATIN [Suspect]
     Indication: BONE SARCOMA
     Route: 065
  4. IFOSFAMIDE [Suspect]
     Indication: BONE SARCOMA
     Route: 065
  5. ETOPOSIDE [Suspect]
     Indication: BONE SARCOMA
     Route: 065
  6. DEXRAZOXANE [Suspect]
     Indication: PROPHYLAXIS
  7. TRASTUZUMAB [Suspect]
     Indication: BREAST CANCER
     Dosage: 4 MG/KG LOADING DOSE AND 2 MG/KG WEEKLY
     Route: 065

REACTIONS (2)
  - Acute myeloid leukaemia [Unknown]
  - Off label use [Unknown]
